FAERS Safety Report 11713542 (Version 1)
Quarter: 2015Q4

REPORT INFORMATION
  Report Type: Spontaneous
  Country: US (occurrence: US)
  Receive Date: 20151109
  Receipt Date: 20151109
  Transmission Date: 20160304
  Serious: No
  Sender: FDA-Public Use
  Company Number: US-009507513-1510USA014383

PATIENT
  Sex: Female

DRUGS (1)
  1. NASONEX [Suspect]
     Active Substance: MOMETASONE FUROATE

REACTIONS (3)
  - Ocular hyperaemia [Unknown]
  - Accidental exposure to product [Unknown]
  - Eye irritation [Unknown]
